FAERS Safety Report 19875518 (Version 3)
Quarter: 2022Q4

REPORT INFORMATION
  Report Type: Spontaneous
  Country: CA (occurrence: CA)
  Receive Date: 20210924
  Receipt Date: 20221230
  Transmission Date: 20230113
  Serious: Yes (Other)
  Sender: FDA-Public Use
  Company Number: CA-AUROBINDO-AUR-APL-2021-039654

PATIENT
  Age: 62 Year
  Sex: Male

DRUGS (7)
  1. AMLODIPINE [Suspect]
     Active Substance: AMLODIPINE BESYLATE
     Indication: Product used for unknown indication
     Dosage: 2.5 MILLIGRAM, ONCE A DAY
     Route: 048
  2. METFORMIN [Suspect]
     Active Substance: METFORMIN HYDROCHLORIDE
     Indication: Product used for unknown indication
     Dosage: 500 MILLIGRAM, ONCE A DAY
     Route: 048
  3. ROSUVASTATIN [Suspect]
     Active Substance: ROSUVASTATIN
     Indication: Product used for unknown indication
     Dosage: 20 MILLIGRAM
     Route: 048
  4. TELMISARTAN [Suspect]
     Active Substance: TELMISARTAN
     Indication: Product used for unknown indication
     Dosage: 80 MILLIGRAM, TWO TIMES A DAY
     Route: 048
  5. MAYZENT [Suspect]
     Active Substance: SIPONIMOD
     Indication: Secondary progressive multiple sclerosis
     Dosage: 2 MILLIGRAM, ONCE A DAY
     Route: 048
  6. PROPRANOLOL [Suspect]
     Active Substance: PROPRANOLOL HYDROCHLORIDE
     Indication: Product used for unknown indication
     Dosage: 40 MILLIGRAM, TWO TIMES A DAY
     Route: 048
  7. MODAFINIL [Concomitant]
     Active Substance: MODAFINIL
     Indication: Product used for unknown indication
     Dosage: 100 MILLIGRAM, TWO TIMES A DAY
     Route: 048

REACTIONS (12)
  - Abdominal pain lower [Unknown]
  - Abdominal discomfort [Unknown]
  - Blood pressure abnormal [Unknown]
  - Contusion [Unknown]
  - Arthralgia [Unknown]
  - Eye haemorrhage [Unknown]
  - Vomiting [Unknown]
  - Musculoskeletal stiffness [Unknown]
  - Asthenia [Unknown]
  - Hypoaesthesia [Unknown]
  - Multiple sclerosis [Unknown]
  - Paraesthesia [Unknown]
